FAERS Safety Report 24733971 (Version 2)
Quarter: 2024Q4

REPORT INFORMATION
  Report Type: Spontaneous
  Country: JP (occurrence: JP)
  Receive Date: 20241214
  Receipt Date: 20241231
  Transmission Date: 20250114
  Serious: Yes (Other)
  Sender: ROCHE
  Company Number: JP-CHUGAI-2024043260

PATIENT
  Age: 69 Year
  Sex: Male

DRUGS (5)
  1. AVASTIN [Suspect]
     Active Substance: BEVACIZUMAB
     Indication: Thymoma malignant
     Dosage: 15 MILLIGRAM/KILOGRAM
     Route: 042
     Dates: start: 202009, end: 202101
  2. PEMETREXED DISODIUM HEMIPENTAHYDRATE [Concomitant]
     Active Substance: PEMETREXED DISODIUM HEMIPENTAHYDRATE
     Indication: Thymoma malignant
     Dosage: 500 MILLIGRAM/SQ. METER
     Route: 042
     Dates: start: 202009, end: 202101
  3. TACROLIMUS [Concomitant]
     Active Substance: TACROLIMUS
     Indication: Myasthenia gravis
     Dosage: UNK
     Route: 065
     Dates: start: 2005, end: 202103
  4. PEMETREXED [Concomitant]
     Active Substance: PEMETREXED
     Dates: start: 202009, end: 202101
  5. TACROLIMUS [Concomitant]
     Active Substance: TACROLIMUS
     Dates: start: 2005, end: 202103

REACTIONS (2)
  - Bronchopulmonary aspergillosis [Unknown]
  - Off label use [Unknown]

NARRATIVE: CASE EVENT DATE: 20210101
